FAERS Safety Report 4729322-1 (Version None)
Quarter: 2005Q3

REPORT INFORMATION
  Report Type: 
  Country: None (occurrence: None)
  Receive Date: 20050729
  Receipt Date: 20050720
  Transmission Date: 20060218
  Serious: Yes (Death)
  Sender: FDA-Public Use
  Company Number: US-JNJFOC-20050704453

PATIENT
  Sex: Male
  Weight: 54.43 kg

DRUGS (1)
  1. FENTANYL [Suspect]
     Route: 062

REACTIONS (2)
  - DISEASE PROGRESSION [None]
  - RENAL FAILURE CHRONIC [None]
